FAERS Safety Report 23829261 (Version 4)
Quarter: 2024Q4

REPORT INFORMATION
  Report Type: Spontaneous
  Country: US (occurrence: US)
  Receive Date: 20240508
  Receipt Date: 20241223
  Transmission Date: 20250115
  Serious: Yes (Other)
  Sender: UCB
  Company Number: US-UCBSA-2024010563

PATIENT
  Sex: Female
  Weight: 81.633 kg

DRUGS (1)
  1. CIMZIA [Suspect]
     Active Substance: CERTOLIZUMAB PEGOL
     Indication: Rheumatoid arthritis
     Dosage: 200 MILLIGRAM, EV 2 WEEKS(QOW)
     Route: 058
     Dates: start: 202203

REACTIONS (9)
  - Rheumatoid arthritis [Unknown]
  - Illness [Unknown]
  - COVID-19 [Unknown]
  - Groin pain [Unknown]
  - Back pain [Unknown]
  - Arthralgia [Unknown]
  - Musculoskeletal discomfort [Unknown]
  - Pain [Unknown]
  - Drug ineffective [Unknown]

NARRATIVE: CASE EVENT DATE: 20240101
